FAERS Safety Report 14572749 (Version 1)
Quarter: 2018Q1

REPORT INFORMATION
  Report Type: Spontaneous
  Country: CZ (occurrence: CZ)
  Receive Date: 20180226
  Receipt Date: 20180226
  Transmission Date: 20180509
  Serious: Yes (Life-Threatening, Other)
  Sender: FDA-Public Use
  Company Number: CZ-ASTRAZENECA-2018SE23564

PATIENT
  Age: 79 Year
  Sex: Female

DRUGS (6)
  1. ANOPYRIN [Concomitant]
     Active Substance: ASPIRIN
  2. METFOGAMMA [Concomitant]
     Active Substance: METFORMIN HYDROCHLORIDE
  3. NOLPAZA [Concomitant]
     Active Substance: PANTOPRAZOLE SODIUM
  4. BRILIQUE [Concomitant]
     Active Substance: TICAGRELOR
  5. ROSUCARD [Suspect]
     Active Substance: ROSUVASTATIN CALCIUM
     Indication: MYOCARDIAL ISCHAEMIA
     Route: 048
     Dates: start: 20171222, end: 20180124
  6. NEBILET [Concomitant]
     Active Substance: NEBIVOLOL

REACTIONS (3)
  - Metabolic acidosis [Unknown]
  - Acute kidney injury [Unknown]
  - Rhabdomyolysis [Unknown]

NARRATIVE: CASE EVENT DATE: 20180125
